FAERS Safety Report 11591724 (Version 1)
Quarter: 2015Q4

REPORT INFORMATION
  Report Type: Spontaneous
  Country: JP (occurrence: JP)
  Receive Date: 20151005
  Receipt Date: 20151005
  Transmission Date: 20160304
  Serious: Yes (Other)
  Sender: FDA-Public Use
  Company Number: JP-NOVEN PHARMACEUTICALS, INC.-JP2015000638

PATIENT
  Age: 46 Year
  Sex: Female

DRUGS (10)
  1. ESTRADIOL/NORETHISTERONE ACETATE [Suspect]
     Active Substance: ESTRADIOL\NORETHINDRONE ACETATE
     Indication: MENOPAUSAL SYMPTOMS
     Dosage: 2 DOSAGE FORM, 2/WK
     Route: 062
     Dates: start: 20150710, end: 20150714
  2. ESTRADIOL/NORETHISTERONE ACETATE [Suspect]
     Active Substance: ESTRADIOL\NORETHINDRONE ACETATE
     Dosage: UNK (1/4 PATCHES)
     Route: 062
     Dates: start: 20150716, end: 20150723
  3. MYSLEE [Concomitant]
     Active Substance: ZOLPIDEM TARTRATE
  4. CELECOX [Concomitant]
     Active Substance: CELECOXIB
  5. LANDSEN [Concomitant]
     Active Substance: CLONAZEPAM
  6. LYRICA [Concomitant]
     Active Substance: PREGABALIN
  7. ESTRADIOL. [Concomitant]
     Active Substance: ESTRADIOL
     Dosage: UNK
     Dates: start: 20150723
  8. TRAMCET [Concomitant]
     Active Substance: ACETAMINOPHEN\TRAMADOL
  9. DEPAS [Concomitant]
     Active Substance: ETIZOLAM
  10. DUPHASTON [Concomitant]
     Active Substance: DYDROGESTERONE
     Dosage: UNK
     Dates: start: 20150723

REACTIONS (2)
  - Respiratory distress [Recovered/Resolved]
  - Malaise [Recovered/Resolved]

NARRATIVE: CASE EVENT DATE: 20150713
